FAERS Safety Report 5906749-3 (Version None)
Quarter: 2008Q3

REPORT INFORMATION
  Report Type: 
  Country: None (occurrence: None)
  Receive Date: 20080930
  Receipt Date: 20080616
  Transmission Date: 20090109
  Serious: No
  Sender: FDA-Public Use
  Company Number: 2008EU001244

PATIENT
  Sex: Female

DRUGS (3)
  1. PROTOPIC [Suspect]
     Indication: DERMATITIS ATOPIC
     Dosage: 0.1 %, BID, TOPICAL; 0.1%, UID/QD, TOPICAL
     Route: 061
     Dates: start: 20080415, end: 20080422
  2. PROTOPIC [Suspect]
     Indication: DERMATITIS ATOPIC
     Dosage: 0.1 %, BID, TOPICAL; 0.1%, UID/QD, TOPICAL
     Route: 061
     Dates: start: 20080422, end: 20080513
  3. EMOLLIENTS AND PROTECTIVES [Concomitant]

REACTIONS (2)
  - DRUG INEFFECTIVE [None]
  - SKIN PAPILLOMA [None]
